FAERS Safety Report 24202105 (Version 2)
Quarter: 2025Q4

REPORT INFORMATION
  Report Type: Spontaneous
  Country: US (occurrence: US)
  Receive Date: 20240812
  Receipt Date: 20251008
  Transmission Date: 20260117
  Serious: No
  Sender: SANDOZ
  Company Number: US-SANDOZ-SDZ2024US071950

PATIENT
  Sex: Female
  Weight: 12 kg

DRUGS (4)
  1. OMNITROPE [Suspect]
     Active Substance: SOMATROPIN
     Indication: Optic nerve hypoplasia
     Dosage: 0.4 MG, QD
     Route: 058
  2. OMNITROPE [Suspect]
     Active Substance: SOMATROPIN
     Indication: Optic nerve hypoplasia
     Dosage: 0.4 MG, QD
     Route: 058
  3. OMNITROPE [Suspect]
     Active Substance: SOMATROPIN
     Indication: Blood test abnormal
  4. OMNITROPE [Suspect]
     Active Substance: SOMATROPIN
     Indication: Blood test abnormal

REACTIONS (3)
  - Off label use [Unknown]
  - Device defective [Unknown]
  - Device breakage [Unknown]
